FAERS Safety Report 18816804 (Version 2)
Quarter: 2021Q1

REPORT INFORMATION
  Report Type: Spontaneous
  Country: FR (occurrence: FR)
  Receive Date: 20210201
  Receipt Date: 20210204
  Transmission Date: 20210419
  Serious: Yes (Hospitalization)
  Sender: FDA-Public Use
  Company Number: FR-MYLANLABS-2021M1005030

PATIENT
  Age: 90 Year
  Sex: Male

DRUGS (6)
  1. PREDNISONE MYLAN PHARMA [Interacting]
     Active Substance: PREDNISONE
     Dosage: 3 DOSAGE FORM, QD
     Dates: start: 20201225
  2. PREDNISONE MYLAN PHARMA [Interacting]
     Active Substance: PREDNISONE
     Dosage: UNK
     Dates: start: 202009
  3. FUROSEMIDE. [Concomitant]
     Active Substance: FUROSEMIDE
     Dosage: UNK
  4. CRESTOR [Concomitant]
     Active Substance: ROSUVASTATIN CALCIUM
     Dosage: UNK
  5. PREDNISONE MYLAN PHARMA [Suspect]
     Active Substance: PREDNISONE
     Indication: RHEUMATOID ARTHRITIS
     Dosage: 9 DOSAGE FORM, QD
     Dates: end: 202008
  6. BISOCE [Interacting]
     Active Substance: BISOPROLOL
     Indication: PRODUCT USED FOR UNKNOWN INDICATION
     Dosage: UNK

REACTIONS (4)
  - Blood creatinine increased [Unknown]
  - Renal disorder [Unknown]
  - Cardiac failure [Unknown]
  - Drug interaction [Unknown]

NARRATIVE: CASE EVENT DATE: 20201225
